FAERS Safety Report 8221187-9 (Version None)
Quarter: 2012Q1

REPORT INFORMATION
  Report Type: 
  Country: None (occurrence: None)
  Receive Date: 20120320
  Receipt Date: 20120309
  Transmission Date: 20120608
  Serious: Yes (Death, Hospitalization)
  Sender: FDA-Public Use
  Company Number: PHHY2012JP012893

PATIENT
  Age: 86 Year
  Sex: Female

DRUGS (3)
  1. PREDNISOLONE [Suspect]
     Dosage: 17.5 MG, UNK
     Route: 048
     Dates: start: 20070906, end: 20090805
  2. NEORAL [Suspect]
     Indication: MYASTHENIA GRAVIS
     Dosage: 35 MG, UNK
     Route: 048
     Dates: start: 20080424, end: 20090805
  3. METHYLPREDNISOLONE [Concomitant]
     Dosage: 1000 MG, UNK

REACTIONS (5)
  - FUNGAL INFECTION [None]
  - IMMUNOSUPPRESSANT DRUG LEVEL INCREASED [None]
  - VOCAL CORD PARALYSIS [None]
  - ACUTE RESPIRATORY DISTRESS SYNDROME [None]
  - GLUCOSE TOLERANCE IMPAIRED [None]
